FAERS Safety Report 21839361 (Version 1)
Quarter: 2023Q1

REPORT INFORMATION
  Report Type: Report from Study
  Country: US (occurrence: US)
  Receive Date: 20230109
  Receipt Date: 20230109
  Transmission Date: 20230417
  Serious: No
  Sender: FDA-Public Use
  Company Number: US-ABBVIE-4229880

PATIENT

DRUGS (2)
  1. HUMIRA [Suspect]
     Active Substance: ADALIMUMAB
     Indication: Psoriasis
     Route: 058
     Dates: start: 2017
  2. HUMIRA [Suspect]
     Active Substance: ADALIMUMAB
     Dates: start: 2022

REACTIONS (3)
  - Migraine [Recovered/Resolved]
  - Pustular psoriasis [Not Recovered/Not Resolved]
  - Pustular psoriasis [Unknown]

NARRATIVE: CASE EVENT DATE: 20180101
